FAERS Safety Report 8009942-1 (Version None)
Quarter: 2011Q4

REPORT INFORMATION
  Report Type: 
  Country: None (occurrence: None)
  Receive Date: 20111228
  Receipt Date: 20111219
  Transmission Date: 20120403
  Serious: Yes (Other)
  Sender: FDA-Public Use
  Company Number: PHHY2011JP108257

PATIENT
  Age: 77 Year
  Sex: Female

DRUGS (8)
  1. CELECOXIB [Concomitant]
     Dosage: 200 MG, UNK
     Route: 048
     Dates: start: 20111205
  2. CONIEL [Concomitant]
     Dosage: 8 MG
     Route: 048
     Dates: start: 20111205
  3. MAGMITT [Concomitant]
     Dosage: 500 MG
     Route: 048
     Dates: start: 20111205
  4. RABEPRAZOLE SODIUM [Suspect]
     Dosage: 10 MG
     Route: 048
     Dates: start: 20111205, end: 20111207
  5. HALCION [Concomitant]
     Dosage: 0.25 MG
     Route: 048
     Dates: start: 20111205
  6. DIOVAN [Suspect]
     Indication: HYPERTENSION
     Dosage: 80 MG, DAILY
     Route: 048
     Dates: start: 20111205, end: 20111207
  7. RIMATIL [Concomitant]
     Dosage: 200 MG
     Route: 048
     Dates: start: 20111205
  8. RIDAURA [Concomitant]
     Dosage: 6 MG
     Route: 048
     Dates: start: 20111205

REACTIONS (1)
  - HYPONATRAEMIA [None]
